FAERS Safety Report 12626212 (Version 2)
Quarter: 2016Q4

REPORT INFORMATION
  Report Type: Spontaneous
  Country: US (occurrence: US)
  Receive Date: 20160805
  Receipt Date: 20161118
  Transmission Date: 20170207
  Serious: Yes (Hospitalization, Other)
  Sender: FDA-Public Use
  Company Number: US-DSJP-DSU-2016-126097

PATIENT

DRUGS (2)
  1. LOSARTAN. [Suspect]
     Active Substance: LOSARTAN
     Indication: HYPERTENSION
     Dosage: UNK
     Dates: start: 2015, end: 2016
  2. BENICAR [Suspect]
     Active Substance: OLMESARTAN MEDOXOMIL
     Indication: HYPERTENSION
     Dosage: 40 MG, QD
     Route: 048
     Dates: start: 20110101, end: 201509

REACTIONS (16)
  - Vomiting [Recovering/Resolving]
  - Hospitalisation [Recovered/Resolved]
  - Weight decreased [Unknown]
  - Drug ineffective [Recovering/Resolving]
  - Treatment noncompliance [Not Recovered/Not Resolved]
  - Cerebrovascular accident [Recovered/Resolved]
  - Fear of death [Recovered/Resolved]
  - Back pain [Recovering/Resolving]
  - Atrial fibrillation [Recovering/Resolving]
  - Abdominal distension [Recovering/Resolving]
  - Alopecia [Recovering/Resolving]
  - Brain injury [Recovering/Resolving]
  - Generalised oedema [Recovering/Resolving]
  - Inflammation [Recovering/Resolving]
  - Asthma [Recovering/Resolving]
  - Musculoskeletal disorder [Unknown]

NARRATIVE: CASE EVENT DATE: 2014
